FAERS Safety Report 6993754-1 (Version None)
Quarter: 2010Q3

REPORT INFORMATION
  Report Type: 
  Country: None (occurrence: None)
  Receive Date: 20100917
  Receipt Date: 20100406
  Transmission Date: 20110219
  Serious: Yes (Hospitalization)
  Sender: FDA-Public Use
  Company Number: US-ASTRAZENECA-2010SE10976

PATIENT
  Age: 71 Year
  Sex: Female
  Weight: 73.5 kg

DRUGS (8)
  1. SEROQUEL XR [Suspect]
     Indication: MAJOR DEPRESSION
     Route: 048
     Dates: start: 20100126, end: 20100220
  2. SEROQUEL XR [Suspect]
     Indication: DEPENDENT PERSONALITY DISORDER
     Route: 048
     Dates: start: 20100126, end: 20100220
  3. SEROQUEL XR [Suspect]
     Indication: PSYCHOTIC DISORDER
     Route: 048
     Dates: start: 20100126, end: 20100220
  4. ABILIFY [Suspect]
  5. PRILOSEC [Concomitant]
     Route: 048
  6. EFFEXOR [Concomitant]
  7. CLONAPINE [Concomitant]
  8. HYDROCORTISONE [Concomitant]

REACTIONS (1)
  - DYSKINESIA [None]
